FAERS Safety Report 8672044 (Version 3)
Quarter: 2013Q1

REPORT INFORMATION
  Report Type: Spontaneous
  Country: US (occurrence: US)
  Receive Date: 20120719
  Receipt Date: 20130130
  Transmission Date: 20140127
  Serious: Yes (Hospitalization)
  Sender: FDA-Public Use
  Company Number: US-BIOGENIDEC-2012BI024401

PATIENT
  Age: 61 Year
  Sex: Female

DRUGS (1)
  1. AVONEX [Suspect]
     Indication: MULTIPLE SCLEROSIS
     Route: 030
     Dates: start: 20010501

REACTIONS (4)
  - Invasive ductal breast carcinoma [Recovered/Resolved]
  - Cyst [Not Recovered/Not Resolved]
  - Fibrocystic breast disease [Unknown]
  - Memory impairment [Not Recovered/Not Resolved]
